FAERS Safety Report 5842157-1 (Version None)
Quarter: 2008Q3

REPORT INFORMATION
  Report Type: 
  Country: None (occurrence: None)
  Receive Date: 20080812
  Receipt Date: 20080729
  Transmission Date: 20090109
  Serious: Yes (Other)
  Sender: FDA-Public Use
  Company Number: US-ELI_LILLY_AND_COMPANY-US200806005027

PATIENT
  Sex: Male

DRUGS (2)
  1. FORTEO [Suspect]
     Indication: OSTEOPOROSIS
     Dosage: UNK, DAILY (1/D)
     Dates: start: 20061201, end: 20080101
  2. FORTEO [Suspect]
     Dosage: UNK, QOD
     Dates: start: 20080101

REACTIONS (2)
  - MUSCLE SPASMS [None]
  - PROSTATIC SPECIFIC ANTIGEN INCREASED [None]
